FAERS Safety Report 5371764-8 (Version None)
Quarter: 2007Q2

REPORT INFORMATION
  Report Type: 
  Country: None (occurrence: None)
  Receive Date: 20070619
  Receipt Date: 20070307
  Transmission Date: 20071010
  Serious: No
  Sender: FDA-Public Use
  Company Number: 2007US000572

PATIENT
  Age: 71 Year
  Sex: Male

DRUGS (3)
  1. VESICARE [Suspect]
     Indication: PROSTATE EXAMINATION ABNORMAL
     Dosage: 10 MG, ORAL
     Route: 048
     Dates: start: 20070104
  2. LEVOTHYROXINE SODIUM [Concomitant]
  3. MINITRAN [Concomitant]

REACTIONS (1)
  - DRUG INEFFECTIVE [None]
